FAERS Safety Report 4769624-6 (Version None)
Quarter: 2005Q3

REPORT INFORMATION
  Report Type: 
  Country: None (occurrence: None)
  Receive Date: 20050915
  Receipt Date: 20050218
  Transmission Date: 20060218
  Serious: No
  Sender: FDA-Public Use
  Company Number: US-GLAXOSMITHKLINE-A0546171A

PATIENT
  Age: 12 Year
  Sex: Female

DRUGS (2)
  1. ABREVA [Suspect]
     Dates: start: 20050204, end: 20050208
  2. VITAMIN A + D [Concomitant]

REACTIONS (7)
  - APPLICATION SITE SCAR [None]
  - CHEILITIS [None]
  - DRUG INEFFECTIVE [None]
  - HERPES SIMPLEX [None]
  - HYPERSENSITIVITY [None]
  - LIP BLISTER [None]
  - SWELLING FACE [None]
